FAERS Safety Report 4921512-8 (Version None)
Quarter: 2006Q1

REPORT INFORMATION
  Report Type: 
  Country: None (occurrence: None)
  Receive Date: 20060222
  Receipt Date: 20060222
  Transmission Date: 20060701
  Serious: Yes (Life-Threatening)
  Sender: FDA-Public Use
  Company Number: None

PATIENT
  Age: 23 Year
  Sex: Female
  Weight: 65.7716 kg

DRUGS (2)
  1. LAMICTAL [Suspect]
     Indication: BIPOLAR I DISORDER
     Dosage: 25MG AM - PO FOR 3 DAYS
     Route: 048
     Dates: start: 20050401
  2. PREDNISONE [Concomitant]

REACTIONS (10)
  - ARTHRALGIA [None]
  - DYSPNOEA [None]
  - ERYTHEMA [None]
  - GENERALISED OEDEMA [None]
  - JOINT SWELLING [None]
  - PHARYNGEAL OEDEMA [None]
  - RASH [None]
  - RASH PRURITIC [None]
  - SWELLING [None]
  - TENDERNESS [None]
